FAERS Safety Report 5237587-5 (Version None)
Quarter: 2007Q1

REPORT INFORMATION
  Report Type: 
  Country: None (occurrence: None)
  Receive Date: 20070213
  Receipt Date: 20070201
  Transmission Date: 20070707
  Serious: Yes (Other)
  Sender: FDA-Public Use
  Company Number: US-PFIZER INC-2007009410

PATIENT
  Age: 49 Year
  Sex: Male

DRUGS (4)
  1. GABAPENTIN [Suspect]
  2. CARBAMAZEPINE [Suspect]
  3. ATENOLOL [Concomitant]
     Indication: BLOOD PRESSURE
  4. LOVASTATIN [Concomitant]
     Indication: BLOOD CHOLESTEROL

REACTIONS (2)
  - ARTHRALGIA [None]
  - BLOOD CREATININE INCREASED [None]
